FAERS Safety Report 14630955 (Version 1)
Quarter: 2018Q1

REPORT INFORMATION
  Report Type: Spontaneous
  Country: US (occurrence: US)
  Receive Date: 20180313
  Receipt Date: 20180313
  Transmission Date: 20180509
  Serious: No
  Sender: FDA-Public Use
  Company Number: US-009507513-1803USA005416

PATIENT
  Age: 33 Year
  Sex: Female
  Weight: 83.91 kg

DRUGS (1)
  1. NEXPLANON [Suspect]
     Active Substance: ETONOGESTREL
     Indication: CONTRACEPTION
     Dosage: 1 IMPLANT, UNK
     Route: 059
     Dates: start: 20160607, end: 20180312

REACTIONS (5)
  - Nausea [Recovering/Resolving]
  - Blood pressure systolic increased [Recovering/Resolving]
  - Implant site fibrosis [Recovering/Resolving]
  - Headache [Recovering/Resolving]
  - Device breakage [Recovered/Resolved]

NARRATIVE: CASE EVENT DATE: 201801
